FAERS Safety Report 25275525 (Version 3)
Quarter: 2025Q3

REPORT INFORMATION
  Report Type: Report from Study
  Country: US (occurrence: US)
  Receive Date: 20250506
  Receipt Date: 20250714
  Transmission Date: 20251020
  Serious: Yes (Hospitalization, Other)
  Sender: ABBVIE
  Company Number: US-ABBVIE-6265059

PATIENT
  Age: 77 Year
  Sex: Male
  Weight: 84.37 kg

DRUGS (2)
  1. CREON [Suspect]
     Active Substance: PANCRELIPASE AMYLASE\PANCRELIPASE LIPASE\PANCRELIPASE PROTEASE
     Indication: Enzyme level decreased
     Route: 048
     Dates: start: 20240909
  2. CREON [Suspect]
     Active Substance: PANCRELIPASE AMYLASE\PANCRELIPASE LIPASE\PANCRELIPASE PROTEASE
     Indication: Enzyme level decreased
     Route: 048

REACTIONS (7)
  - Pancreatic carcinoma metastatic [Not Recovered/Not Resolved]
  - Diarrhoea [Not Recovered/Not Resolved]
  - Prostate cancer [Not Recovered/Not Resolved]
  - Jaundice [Recovered/Resolved]
  - Chromaturia [Unknown]
  - Pseudocyst [Unknown]
  - Pancreatic failure [Unknown]

NARRATIVE: CASE EVENT DATE: 20240101
